FAERS Safety Report 15735068 (Version 1)
Quarter: 2018Q4

REPORT INFORMATION
  Report Type: Report from Study
  Country: US (occurrence: US)
  Receive Date: 20181218
  Receipt Date: 20181218
  Transmission Date: 20190205
  Serious: Yes (Other)
  Sender: FDA-Public Use
  Company Number: US-TESARO-2018-TSO2467-US

PATIENT
  Sex: Female

DRUGS (1)
  1. ZEJULA [Suspect]
     Active Substance: NIRAPARIB
     Indication: OVARIAN CANCER
     Dosage: 300 MG QPM
     Route: 048
     Dates: end: 201811

REACTIONS (2)
  - Full blood count decreased [Unknown]
  - Contusion [Unknown]

NARRATIVE: CASE EVENT DATE: 2018
